FAERS Safety Report 8839709 (Version 1)
Quarter: 2012Q4

REPORT INFORMATION
  Report Type: Spontaneous
  Country: GB (occurrence: None)
  Receive Date: 20121011
  Receipt Date: 20121011
  Transmission Date: 20130627
  Serious: Yes (Other)
  Sender: FDA-Public Use
  Company Number: 2012-01461

PATIENT
  Age: 50 Year

DRUGS (1)
  1. SIMVASTATIN (UNKNOWN) [Suspect]
     Indication: PREVENTION
     Dosage: 20 mg (20 mg, 1 in 1 d). oral
     Route: 048
     Dates: start: 20120820

REACTIONS (1)
  - Nightmare [None]
